FAERS Safety Report 20619419 (Version 1)
Quarter: 2022Q1

REPORT INFORMATION
  Report Type: Spontaneous
  Country: US (occurrence: None)
  Receive Date: 20220322
  Receipt Date: 20220322
  Transmission Date: 20220423
  Serious: Yes (Other)
  Sender: FDA-Public Use
  Company Number: US-Hikma Pharmaceuticals USA Inc.-US-H14001-22-00797

PATIENT
  Age: 15 Year
  Sex: Male

DRUGS (5)
  1. KETAMINE [Suspect]
     Active Substance: KETAMINE
     Indication: Neurotoxicity
     Dosage: 30 MCG/KG/MIN
     Route: 041
  2. DEXMEDETOMIDINE [Concomitant]
     Active Substance: DEXMEDETOMIDINE
     Indication: Sedation
     Dosage: UNKNOWN
     Route: 041
  3. FENTANYL [Concomitant]
     Active Substance: FENTANYL
     Indication: Sedation
     Dosage: UNKNOWN
     Route: 041
  4. LEVETIRACETAM [Concomitant]
     Active Substance: LEVETIRACETAM
     Indication: Seizure prophylaxis
     Dosage: UNKNOWN
     Route: 065
  5. DEXTROMETHORPHAN [Concomitant]
     Active Substance: DEXTROMETHORPHAN
     Indication: Neurotoxicity

REACTIONS (6)
  - Agitation [Recovered/Resolved]
  - Grimacing [Recovered/Resolved]
  - Mental status changes [Recovered/Resolved]
  - Depressed mood [Recovered/Resolved]
  - Unresponsive to stimuli [Recovered/Resolved]
  - General physical health deterioration [Recovered/Resolved]
